FAERS Safety Report 5383162-1 (Version None)
Quarter: 2007Q3

REPORT INFORMATION
  Report Type: 
  Country: None (occurrence: None)
  Receive Date: 20070710
  Receipt Date: 20070709
  Transmission Date: 20080115
  Serious: Yes (Death)
  Sender: FDA-Public Use
  Company Number: HQWYE973909JUL07

PATIENT
  Sex: Male
  Weight: 68 kg

DRUGS (7)
  1. GEMTUZUMAB OZOGAMICIN [Suspect]
     Indication: ACUTE MYELOID LEUKAEMIA
     Dosage: ACTUAL DOSE GIVEN 10 MG; CUMULATIVE DOSE GIVEN 20 MG
     Dates: start: 20070522, end: 20070608
  2. ETOPOSIDE [Suspect]
     Indication: ACUTE MYELOID LEUKAEMIA
     Dosage: DOSE AND FREQUENCY NOT REPORTED
     Dates: start: 20070616, end: 20070620
  3. PREDNISOLONE [Concomitant]
     Dosage: DOSE AND FREQUENCY NOT REPORTED
     Dates: start: 20070630, end: 20070701
  4. DOPAMINE HCL [Concomitant]
     Dosage: DOSE AND FREQUENCY NOT REPORTED
     Dates: start: 20070630, end: 20070701
  5. MORPHINE [Concomitant]
     Dosage: DOSE AND FREQUENCY NOT REPORTED
     Dates: start: 20070630, end: 20070701
  6. MITOXANTRONE HCL [Suspect]
     Indication: ACUTE MYELOID LEUKAEMIA
     Dosage: DOSE AND FREQUENCY NOT REPORTED
     Dates: start: 20070616, end: 20070620
  7. CYTARABINE [Suspect]
     Indication: ACUTE MYELOID LEUKAEMIA
     Dosage: DOSE AND FREQUENCY NOT REPORTED
     Dates: start: 20070616, end: 20070620

REACTIONS (1)
  - SEPTIC SHOCK [None]
